FAERS Safety Report 15666347 (Version 2)
Quarter: 2018Q4

REPORT INFORMATION
  Report Type: Spontaneous
  Country: US (occurrence: US)
  Receive Date: 20181128
  Receipt Date: 20181204
  Transmission Date: 20190205
  Serious: Yes (Other)
  Sender: FDA-Public Use
  Company Number: US-ASTRAZENECA-2018SF51533

PATIENT
  Age: 73 Year
  Sex: Male
  Weight: 80.7 kg

DRUGS (16)
  1. ATENOLOL. [Suspect]
     Active Substance: ATENOLOL
     Indication: HYPERTENSION
     Dosage: 25.0MG UNKNOWN
     Route: 048
  2. ATORVASTATIN [Suspect]
     Active Substance: ATORVASTATIN
     Indication: BLOOD CHOLESTEROL ABNORMAL
     Dosage: 10.0MG UNKNOWN
     Route: 065
  3. TAMSULOSIN [Suspect]
     Active Substance: TAMSULOSIN
     Indication: PROSTATOMEGALY
     Route: 065
  4. DORZOLAMIDE [Concomitant]
     Active Substance: DORZOLAMIDE
     Indication: GLAUCOMA
     Dosage: TWICE A DAY INTO BOTH EYES
  5. BRILINTA [Suspect]
     Active Substance: TICAGRELOR
     Indication: STENT PLACEMENT
     Route: 048
     Dates: start: 201706, end: 20180913
  6. OMEPRAZOLE. [Suspect]
     Active Substance: OMEPRAZOLE
     Indication: HIATUS HERNIA
     Route: 048
     Dates: start: 201606
  7. NITROFURANTOIN. [Suspect]
     Active Substance: NITROFURANTOIN
     Indication: URINARY TRACT INFECTION
     Dosage: 100.0MG UNKNOWN
     Route: 065
  8. ISOSORBIDE MONONITRATE. [Concomitant]
     Active Substance: ISOSORBIDE MONONITRATE
     Indication: BLOOD DISORDER
     Dosage: 30.0MG UNKNOWN
  9. ASPIRIN. [Concomitant]
     Active Substance: ASPIRIN
     Dosage: 80.0MG UNKNOWN
  10. KEPPRA [Concomitant]
     Active Substance: LEVETIRACETAM
     Route: 048
  11. BRILINTA [Suspect]
     Active Substance: TICAGRELOR
     Indication: ANTICOAGULANT THERAPY
     Route: 048
     Dates: start: 201706, end: 20180913
  12. TYLENOL [Concomitant]
     Active Substance: ACETAMINOPHEN
  13. DUTASTERIDE. [Suspect]
     Active Substance: DUTASTERIDE
     Route: 065
  14. OMEPRAZOLE. [Suspect]
     Active Substance: OMEPRAZOLE
     Indication: GASTROOESOPHAGEAL REFLUX DISEASE
     Route: 048
     Dates: start: 201606
  15. FERROUS GLUCONATE [Suspect]
     Active Substance: FERROUS GLUCONATE
     Indication: SUPPLEMENTATION THERAPY
     Dosage: 324.0MG UNKNOWN
     Route: 065
  16. SOTALOL. [Concomitant]
     Active Substance: SOTALOL
     Route: 048

REACTIONS (25)
  - Haemorrhage urinary tract [Unknown]
  - Feeling abnormal [Recovering/Resolving]
  - Myocardial infarction [Unknown]
  - Blood pressure increased [Recovered/Resolved]
  - Amnesia [Recovered/Resolved]
  - Myalgia [Unknown]
  - Muscle disorder [Unknown]
  - Blood pressure decreased [Recovered/Resolved]
  - Cataract [Unknown]
  - Pain [Recovering/Resolving]
  - Restless legs syndrome [Unknown]
  - Joint injury [Unknown]
  - Heart rate decreased [Recovered/Resolved]
  - Drug intolerance [Unknown]
  - Blood iron decreased [Unknown]
  - Erectile dysfunction [Unknown]
  - Fall [Unknown]
  - Asthenia [Recovered/Resolved]
  - Mental disorder [Unknown]
  - Urinary tract obstruction [Unknown]
  - Abdominal pain upper [Unknown]
  - Epilepsy [Unknown]
  - Diarrhoea [Unknown]
  - Insomnia [Recovering/Resolving]
  - Middle insomnia [Recovered/Resolved]

NARRATIVE: CASE EVENT DATE: 2014
